FAERS Safety Report 9358354 (Version 2)
Quarter: 2013Q3

REPORT INFORMATION
  Report Type: Report from Study
  Country: US (occurrence: US)
  Receive Date: 20130620
  Receipt Date: 20130701
  Transmission Date: 20140515
  Serious: Yes (Other)
  Sender: FDA-Public Use
  Company Number: PHEH2013US013072

PATIENT
  Age: 37 Year
  Sex: Female

DRUGS (2)
  1. GILENYA [Suspect]
     Indication: MULTIPLE SCLEROSIS
     Dosage: 0.5 MG, QD
     Route: 048
     Dates: start: 20130612, end: 20130614
  2. METHYLPHENIDATE [Concomitant]
     Indication: FATIGUE
     Dosage: 10 MG, QD
     Route: 048

REACTIONS (3)
  - Optic neuritis [Unknown]
  - Macular oedema [Recovering/Resolving]
  - Visual impairment [Recovering/Resolving]
